FAERS Safety Report 9409497 (Version 6)
Quarter: 2014Q2

REPORT INFORMATION
  Report Type: Report from Study
  Country: DE (occurrence: DE)
  Receive Date: 20130719
  Receipt Date: 20140529
  Transmission Date: 20141212
  Serious: Yes (Hospitalization)
  Sender: FDA-Public Use
  Company Number: DE-PFIZER INC-2013206151

PATIENT
  Age: 71 Year
  Sex: Male
  Weight: 110 kg

DRUGS (10)
  1. GEMTUZUMAB OZOGAMICIN [Suspect]
     Indication: ACUTE MYELOID LEUKAEMIA
     Dosage: 6 MG, UNK
     Dates: start: 20130522, end: 20130522
  2. IDARUBICIN [Suspect]
     Indication: ACUTE MYELOID LEUKAEMIA
     Dosage: 24 MG, UNK
     Dates: start: 20130522, end: 20130524
  3. ETOPOSIDE [Suspect]
     Indication: ACUTE MYELOID LEUKAEMIA
     Dosage: 200 MG, UNK
     Dates: start: 20130522, end: 20130524
  4. CYTARABINE [Suspect]
     Indication: ACUTE MYELOID LEUKAEMIA
     Dosage: 200 MG, UNK
     Dates: start: 20130522, end: 20130528
  5. ATRA [Concomitant]
     Indication: ACUTE MYELOID LEUKAEMIA
     Dosage: 90 MG, UNK
     Dates: start: 20130527, end: 20130529
  6. ATRA [Concomitant]
     Dosage: 30 MG, UNK
     Dates: start: 20130530, end: 20130611
  7. ATRA [Concomitant]
     Dosage: UNK
     Dates: start: 20130731
  8. LOSARTAN [Concomitant]
     Dosage: 100 MG, UNK
  9. SAROTEN [Concomitant]
     Dosage: 25 MG, UNK
  10. VFEND [Concomitant]
     Dosage: 490 MG, UNK

REACTIONS (1)
  - Pneumonia [Recovered/Resolved]
